FAERS Safety Report 5482412-0 (Version None)
Quarter: 2007Q4

REPORT INFORMATION
  Report Type: 
  Country: None (occurrence: None)
  Receive Date: 20071011
  Receipt Date: 20071004
  Transmission Date: 20080405
  Serious: Yes (Other)
  Sender: FDA-Public Use
  Company Number: B0490412A

PATIENT
  Age: 55 Year
  Sex: Male

DRUGS (14)
  1. AUGMENTIN '125' [Suspect]
     Indication: SINUS DISORDER
     Dosage: 375MG UNKNOWN
     Route: 048
     Dates: start: 20070906, end: 20070911
  2. BACLOFEN [Concomitant]
  3. DIGOXIN [Concomitant]
  4. FLUOXETINE [Concomitant]
  5. FOLIC ACID [Concomitant]
  6. FUROSEMIDE [Concomitant]
  7. GABAPENTIN [Concomitant]
  8. MORPHINE SUL INJ [Concomitant]
  9. OMEPRAZOLE [Concomitant]
  10. SENNA [Concomitant]
  11. SPIRONOLACTONE [Concomitant]
  12. THIAMINE [Concomitant]
  13. TRAZODONE HCL [Concomitant]
  14. WARFARIN SODIUM [Concomitant]

REACTIONS (3)
  - INTERNATIONAL NORMALISED RATIO INCREASED [None]
  - JAUNDICE CHOLESTATIC [None]
  - LIVER FUNCTION TEST ABNORMAL [None]
